FAERS Safety Report 12706933 (Version 1)
Quarter: 2016Q3

REPORT INFORMATION
  Report Type: Report from Study
  Country: US (occurrence: US)
  Receive Date: 20160901
  Receipt Date: 20160901
  Transmission Date: 20161109
  Serious: Yes (Other)
  Sender: FDA-Public Use
  Company Number: US-PFIZER INC-2012308258

PATIENT
  Age: 70 Year
  Sex: Female
  Weight: 53 kg

DRUGS (3)
  1. IBUPROFEN. [Suspect]
     Active Substance: IBUPROFEN
     Indication: OSTEOARTHRITIS
     Dosage: UNK MG, UNK
     Route: 048
     Dates: start: 20100429, end: 20100825
  2. IBUPROFEN. [Suspect]
     Active Substance: IBUPROFEN
     Indication: RHEUMATOID ARTHRITIS
  3. NEXIUM [Concomitant]
     Active Substance: ESOMEPRAZOLE MAGNESIUM
     Indication: PROPHYLAXIS
     Dosage: 1X/DAY
     Route: 048
     Dates: start: 20100429, end: 20100825

REACTIONS (1)
  - Lacunar infarction [Unknown]

NARRATIVE: CASE EVENT DATE: 20110711
